FAERS Safety Report 5262010-4 (Version None)
Quarter: 2007Q1

REPORT INFORMATION
  Report Type: 
  Country: None (occurrence: None)
  Receive Date: 20061208
  Receipt Date: 20060731
  Transmission Date: 20070707
  Serious: Yes (Other)
  Sender: FDA-Public Use
  Company Number: USA-2006-0024828

PATIENT
  Age: 35 Year
  Sex: Male

DRUGS (6)
  1. OXYCONTIN [Suspect]
     Indication: DRUG USE FOR UNKNOWN INDICATION
  2. VICODIN [Suspect]
     Indication: PAIN
     Dosage: SEE TEXT
  3. ULTRAM [Suspect]
     Indication: PAIN
  4. TROPOL XL [Concomitant]
  5. PAXIL [Concomitant]
  6. ELAVIL [Concomitant]

REACTIONS (1)
  - SUBSTANCE ABUSE [None]
